FAERS Safety Report 6508684-9 (Version None)
Quarter: 2009Q4

REPORT INFORMATION
  Report Type: 
  Country: None (occurrence: None)
  Receive Date: 20091221
  Receipt Date: 20090724
  Transmission Date: 20100525
  Serious: No
  Sender: FDA-Public Use
  Company Number: US-ASTRAZENECA-2009SE06203

PATIENT
  Age: 73 Year
  Sex: Female
  Weight: 57.2 kg

DRUGS (1)
  1. CRESTOR [Suspect]
     Indication: BLOOD CHOLESTEROL INCREASED
     Route: 048
     Dates: start: 20090601

REACTIONS (2)
  - DRUG INEFFECTIVE [None]
  - JOINT STIFFNESS [None]
